FAERS Safety Report 8448236-7 (Version None)
Quarter: 2012Q2

REPORT INFORMATION
  Report Type: 
  Country: None (occurrence: None)
  Receive Date: 20120619
  Receipt Date: 20120614
  Transmission Date: 20120825
  Serious: Yes (Hospitalization)
  Sender: FDA-Public Use
  Company Number: PHHY2012GB020639

PATIENT
  Age: 28 Year
  Sex: Female
  Weight: 70 kg

DRUGS (1)
  1. DOXYCYCLINE [Suspect]
     Dosage: 100 MG, UNK
     Route: 048

REACTIONS (3)
  - FOREIGN BODY [None]
  - OESOPHAGEAL PAIN [None]
  - OESOPHAGEAL ULCER [None]
